FAERS Safety Report 4984320-8 (Version None)
Quarter: 2006Q2

REPORT INFORMATION
  Report Type: 
  Country: None (occurrence: None)
  Receive Date: 20060420
  Receipt Date: 20060323
  Transmission Date: 20061013
  Serious: Yes (Death, Hospitalization)
  Sender: FDA-Public Use
  Company Number: 2006-03-1629

PATIENT
  Age: 64 Year
  Sex: Male
  Weight: 79 kg

DRUGS (4)
  1. INTRON A [Suspect]
     Indication: MENINGEAL NEOPLASM
     Dosage: 6MIU TIW-BIW* INTRAMUSCU
     Route: 030
     Dates: start: 20031101
  2. PREDNISOLONE [Concomitant]
  3. CLADRIBINE [Concomitant]
  4. METHYLPREDNISOLONE PULSE THERAPY [Concomitant]

REACTIONS (14)
  - CONDITION AGGRAVATED [None]
  - DRUG RESISTANCE [None]
  - FIBROSIS [None]
  - HEPATIC FIBROSIS [None]
  - HEPATOSPLENOMEGALY [None]
  - LYMPHADENOPATHY [None]
  - MALIGNANT NEOPLASM PROGRESSION [None]
  - MASTOCYTOSIS [None]
  - MULTI-ORGAN FAILURE [None]
  - PANCREATIC DISORDER [None]
  - PLATELET COUNT DECREASED [None]
  - PYREXIA [None]
  - SPINAL CORD COMPRESSION [None]
  - SPLEEN DISORDER [None]
